FAERS Safety Report 6630556-X (Version None)
Quarter: 2010Q1

REPORT INFORMATION
  Report Type: 
  Country: None (occurrence: None)
  Receive Date: 20100311
  Receipt Date: 20090720
  Transmission Date: 20100710
  Serious: Yes (Other)
  Sender: FDA-Public Use
  Company Number: US-BIOGENIDEC-2008BI034574

PATIENT
  Age: 47 Year
  Sex: Female

DRUGS (2)
  1. AVONEX [Suspect]
     Indication: MULTIPLE SCLEROSIS
     Route: 030
     Dates: start: 20050318
  2. KEPPRA [Concomitant]
     Indication: CONVULSION

REACTIONS (4)
  - ARTHRALGIA [None]
  - CONVULSION [None]
  - MEMORY IMPAIRMENT [None]
  - TREMOR [None]
